FAERS Safety Report 10275814 (Version 1)
Quarter: 2014Q3

REPORT INFORMATION
  Report Type: Report from Study
  Country: MX (occurrence: MX)
  Receive Date: 20140703
  Receipt Date: 20140703
  Transmission Date: 20150326
  Serious: Yes (Life-Threatening, Other)
  Sender: FDA-Public Use
  Company Number: PHHY2014MX081506

PATIENT
  Age: 74 Year
  Sex: Male

DRUGS (2)
  1. CO-DIOVAN [Suspect]
     Active Substance: HYDROCHLOROTHIAZIDE\VALSARTAN
     Indication: HYPERTENSION
     Dosage: 1 TABLET (160/12.5 MG), DAILY
     Route: 048
     Dates: start: 200206
  2. CO-DIOVAN [Suspect]
     Active Substance: HYDROCHLOROTHIAZIDE\VALSARTAN
     Dosage: 0.5 TABLET (160/12.5 MG), EACH THIRD DAY
     Route: 048

REACTIONS (10)
  - Apparent death [Recovered/Resolved]
  - Hip fracture [Recovered/Resolved]
  - Drug prescribing error [Unknown]
  - Bone pain [Not Recovered/Not Resolved]
  - Malaise [Unknown]
  - Fall [Recovered/Resolved]
  - Diverticulum [Recovered/Resolved]
  - Nephrolithiasis [Recovered/Resolved]
  - Rib fracture [Recovered/Resolved]
  - Wrong technique in drug usage process [Not Recovered/Not Resolved]

NARRATIVE: CASE EVENT DATE: 200309
